FAERS Safety Report 14211018 (Version 1)
Quarter: 2017Q4

REPORT INFORMATION
  Report Type: Report from Study
  Country: JP (occurrence: JP)
  Receive Date: 20171121
  Receipt Date: 20171121
  Transmission Date: 20180321
  Serious: Yes (Death)
  Sender: FDA-Public Use
  Company Number: JP-ROCHE-2027701

PATIENT

DRUGS (2)
  1. ALTEPLASE. [Suspect]
     Active Substance: ALTEPLASE
     Indication: ISCHAEMIC STROKE
     Dosage: 10% OF 0.6 MG/KG WAS GIVEN AS BOLUS
     Route: 040
  2. ALTEPLASE. [Suspect]
     Active Substance: ALTEPLASE
     Dosage: 90% OF 0.6 MG/KG WAS GIVEN WITHIN AN HOUR.
     Route: 042

REACTIONS (1)
  - Cerebral haemorrhage [Fatal]
